FAERS Safety Report 6826588-9 (Version None)
Quarter: 2010Q3

REPORT INFORMATION
  Report Type: 
  Country: None (occurrence: None)
  Receive Date: 20100709
  Receipt Date: 20100706
  Transmission Date: 20110219
  Serious: Yes (Death, Life-Threatening, Other)
  Sender: FDA-Public Use
  Company Number: US-SANOFI-AVENTIS-2010SA038125

PATIENT
  Sex: Female

DRUGS (1)
  1. TAXOTERE [Suspect]
     Indication: PRODUCT USED FOR UNKNOWN INDICATION
     Route: 051

REACTIONS (15)
  - ABDOMINAL PAIN [None]
  - ASPIRATION [None]
  - BLOOD CREATININE INCREASED [None]
  - BLOOD PRESSURE DECREASED [None]
  - BLOOD UREA INCREASED [None]
  - CARDIAC ARREST [None]
  - CARDIAC FAILURE [None]
  - GASTRITIS [None]
  - HAEMATEMESIS [None]
  - MALAISE [None]
  - OESOPHAGITIS [None]
  - RENAL FAILURE [None]
  - RESPIRATORY FAILURE [None]
  - SOFT TISSUE NECROSIS [None]
  - WHITE BLOOD CELL COUNT DECREASED [None]
